FAERS Safety Report 9557724 (Version 1)
Quarter: 2013Q3

REPORT INFORMATION
  Report Type: Spontaneous
  Country: GB (occurrence: None)
  Receive Date: 20130917
  Receipt Date: 20130917
  Transmission Date: 20140515
  Serious: Yes (Other)
  Sender: FDA-Public Use
  Company Number: AEGBR201300325

PATIENT
  Age: 23 Year
  Sex: Female

DRUGS (1)
  1. IGIVNEX [Suspect]
     Indication: CHRONIC INFLAMMATORY DEMYELINATING POLYRADICULONEUROPATHY
     Route: 042

REACTIONS (2)
  - Haemolytic anaemia [None]
  - Hepatic function abnormal [None]
